FAERS Safety Report 4567523-6 (Version None)
Quarter: 2005Q1

REPORT INFORMATION
  Report Type: 
  Country: None (occurrence: None)
  Receive Date: 20050201
  Receipt Date: 20050127
  Transmission Date: 20050727
  Serious: Yes (Other)
  Sender: FDA-Public Use
  Company Number: NL-MERCK-0501NLD00047

PATIENT
  Sex: Male

DRUGS (1)
  1. VIOXX [Suspect]
     Route: 065
     Dates: start: 20000101, end: 20000101

REACTIONS (1)
  - EPILEPSY [None]
